FAERS Safety Report 7961670-4 (Version None)
Quarter: 2011Q4

REPORT INFORMATION
  Report Type: 
  Country: None (occurrence: None)
  Receive Date: 20111207
  Receipt Date: 20111201
  Transmission Date: 20120403
  Serious: Yes (Other)
  Sender: FDA-Public Use
  Company Number: US-PFIZER INC-2011294151

PATIENT
  Sex: Female
  Weight: 68.027 kg

DRUGS (10)
  1. ZETIA [Concomitant]
     Indication: BLOOD CHOLESTEROL ABNORMAL
     Dosage: 25 MG, DAILY
     Route: 048
  2. SYMBICORT [Concomitant]
     Indication: ASTHMA
     Dosage: 160/4.5 UG, 2X/DAY
  3. DILANTIN [Suspect]
     Indication: EPILEPSY
     Dosage: 300MG DAILY ON WED, FRI, SUN AND 200MG DAILY ON MON, TUES, THURS, SAT
     Dates: start: 19800101, end: 20111024
  4. DILANTIN [Suspect]
     Dosage: 50 MG DAILY
     Dates: start: 20111025, end: 20111101
  5. AGGRENOX [Concomitant]
     Indication: CEREBROVASCULAR ACCIDENT
     Dosage: 25/200 MG, 2X/DAY
     Route: 048
  6. SYNTHROID [Concomitant]
     Indication: THYROID DISORDER
     Dosage: 150 UG, DAILY
     Route: 048
  7. ATENOLOL [Concomitant]
     Indication: HEART RATE IRREGULAR
     Dosage: 25 MG, DAILY
  8. PRAVASTATIN [Concomitant]
     Indication: BLOOD CHOLESTEROL ABNORMAL
     Dosage: 40 MG, DAILY
  9. PHENYTOIN [Suspect]
     Dosage: UNK
  10. CHLORDIAZEPOXIDE HCL W/ CLIDINIUM BROMIDE [Suspect]
     Indication: IRRITABLE BOWEL SYNDROME
     Dosage: 5/2.5 MG, DAILY
     Route: 048

REACTIONS (1)
  - ANTICONVULSANT DRUG LEVEL DECREASED [None]
